FAERS Safety Report 9014893 (Version 2)
Quarter: 2013Q1

REPORT INFORMATION
  Report Type: Spontaneous
  Country: US (occurrence: US)
  Receive Date: 20130116
  Receipt Date: 20130321
  Transmission Date: 20140127
  Serious: No
  Sender: FDA-Public Use
  Company Number: US-BIOGENIDEC-2013BI001714

PATIENT
  Age: 36 None
  Sex: Female

DRUGS (2)
  1. TYSABRI [Suspect]
     Indication: MULTIPLE SCLEROSIS
     Route: 042
     Dates: start: 20120131
  2. AMPYRA [Concomitant]
     Indication: MULTIPLE SCLEROSIS
     Dates: start: 20121201

REACTIONS (4)
  - Gait disturbance [Recovered/Resolved]
  - Muscle spasms [Not Recovered/Not Resolved]
  - Anger [Not Recovered/Not Resolved]
  - Menorrhagia [Unknown]
